FAERS Safety Report 7530448-8 (Version None)
Quarter: 2011Q2

REPORT INFORMATION
  Report Type: 
  Country: None (occurrence: None)
  Receive Date: 20110607
  Receipt Date: 20110601
  Transmission Date: 20111010
  Serious: Yes (Other)
  Sender: FDA-Public Use
  Company Number: CHPA2011US07539

PATIENT
  Age: 47 Year
  Sex: Female

DRUGS (1)
  1. EXCEDRIN (MIGRAINE) [Suspect]
     Indication: MIGRAINE
     Dosage: 2-4 TABLETS, QD
     Route: 048

REACTIONS (4)
  - DRUG INEFFECTIVE [None]
  - DISEASE RECURRENCE [None]
  - OVERDOSE [None]
  - CONTUSION [None]
